FAERS Safety Report 8110994-9 (Version None)
Quarter: 2012Q1

REPORT INFORMATION
  Report Type: 
  Country: None (occurrence: None)
  Receive Date: 20120203
  Receipt Date: 20110202
  Transmission Date: 20120608
  Serious: No
  Sender: FDA-Public Use
  Company Number: US-GLAXOSMITHKLINE-A0911458A

PATIENT
  Age: 28 Year
  Sex: Male
  Weight: 75 kg

DRUGS (3)
  1. LAMICTAL [Suspect]
     Indication: BIPOLAR I DISORDER
     Dosage: 5MG PER DAY
     Route: 048
     Dates: start: 20101029, end: 20101102
  2. LITHIUM CARBONATE [Concomitant]
     Dosage: 300MG PER DAY
  3. NORTRIPTYLINE HCL [Concomitant]
     Dosage: 3MG PER DAY

REACTIONS (9)
  - DISCOMFORT [None]
  - ENERGY INCREASED [None]
  - ANXIETY [None]
  - PANIC REACTION [None]
  - ANHEDONIA [None]
  - TACHYPHRENIA [None]
  - INSOMNIA [None]
  - FEELING ABNORMAL [None]
  - PSYCHOMOTOR HYPERACTIVITY [None]
